FAERS Safety Report 21769136 (Version 1)
Quarter: 2022Q4

REPORT INFORMATION
  Report Type: Spontaneous
  Country: US (occurrence: US)
  Receive Date: 20221222
  Receipt Date: 20221222
  Transmission Date: 20230112
  Serious: No
  Sender: FDA-Public Use
  Company Number: US-ChurchDwight-2022-CDW-01910

PATIENT
  Age: 74 Year
  Sex: Male

DRUGS (1)
  1. ZICAM COLD REMEDY [Suspect]
     Active Substance: HOMEOPATHICS\ZINC ACETATE\ZINC GLUCONATE
     Indication: Nasopharyngitis
     Dosage: 2-3 TIMES, EVERY 2-3 HOURS
     Route: 048
     Dates: start: 20221119

REACTIONS (3)
  - Ageusia [Recovered/Resolved]
  - Burning sensation mucosal [Recovered/Resolved]
  - Oral pain [Recovered/Resolved]

NARRATIVE: CASE EVENT DATE: 20221119
